FAERS Safety Report 5804321-7 (Version None)
Quarter: 2008Q3

REPORT INFORMATION
  Report Type: 
  Country: None (occurrence: None)
  Receive Date: 20080707
  Receipt Date: 20080707
  Transmission Date: 20090109
  Serious: Yes (Other)
  Sender: FDA-Public Use
  Company Number: None

PATIENT
  Age: 15 Year
  Sex: Male
  Weight: 56.6996 kg

DRUGS (1)
  1. SINGULAIR [Suspect]
     Indication: HYPERSENSITIVITY
     Dosage: 10MG TAB ONCE A DAY PO
     Route: 048
     Dates: start: 20080101, end: 20080130

REACTIONS (8)
  - ABDOMINAL PAIN UPPER [None]
  - ANXIETY [None]
  - DEPRESSION [None]
  - HEADACHE [None]
  - MOOD ALTERED [None]
  - MOOD SWINGS [None]
  - NIGHTMARE [None]
  - PAIN IN EXTREMITY [None]
